FAERS Safety Report 9820585 (Version 1)
Quarter: 2013Q4

REPORT INFORMATION
  Report Type: Spontaneous
  Country: US (occurrence: None)
  Receive Date: 20131028
  Receipt Date: 20131028
  Transmission Date: 20140711
  Serious: Yes (Other)
  Sender: FDA-Public Use
  Company Number: 2013US001738

PATIENT
  Age: 69 Year
  Sex: Female
  Weight: 104 kg

DRUGS (9)
  1. ICLUSIG [Suspect]
     Indication: CHRONIC MYELOID LEUKAEMIA
     Route: 048
  2. AMARYL (GLIMEPIRIDE) [Concomitant]
  3. FISH OIL (FISH OIL) [Concomitant]
  4. LASIX (FUROSEMIDE) [Concomitant]
  5. ASPIRIN (ASPIRIN) [Concomitant]
  6. COREG (CARVEDILOL) [Concomitant]
  7. VITAMIN D (VITAMIN D) [Concomitant]
  8. GLUCOSAMINE (GLUCOSAMINE) [Concomitant]
  9. CHONDROITIN (CHONDROITIN) [Concomitant]

REACTIONS (5)
  - Vision blurred [None]
  - Hyperhidrosis [None]
  - Weight decreased [None]
  - Decreased appetite [None]
  - Rash [None]
